FAERS Safety Report 8258316-7 (Version None)
Quarter: 2012Q2

REPORT INFORMATION
  Report Type: 
  Country: None (occurrence: None)
  Receive Date: 20120403
  Receipt Date: 20120403
  Transmission Date: 20120825
  Serious: No
  Sender: FDA-Public Use
  Company Number: None

PATIENT
  Age: 87 Year
  Sex: Female
  Weight: 40.3701 kg

DRUGS (1)
  1. CYMBALTA [Suspect]
     Indication: PAIN
     Dosage: 30MG BID ORAL
     Route: 048
     Dates: start: 20120130, end: 20120216

REACTIONS (2)
  - ABNORMAL BEHAVIOUR [None]
  - HALLUCINATION, VISUAL [None]
